FAERS Safety Report 4530270-0 (Version None)
Quarter: 2004Q4

REPORT INFORMATION
  Report Type: 
  Country: None (occurrence: None)
  Receive Date: 20041217
  Receipt Date: 20041027
  Transmission Date: 20050328
  Serious: No
  Sender: FDA-Public Use
  Company Number: US-MERCK-0410USA04110

PATIENT
  Age: 64 Year
  Sex: Female
  Weight: 44 kg

DRUGS (1)
  1. VIOXX [Suspect]
     Indication: ARTHRITIS
     Route: 048
     Dates: start: 20040101, end: 20041025

REACTIONS (5)
  - ANOREXIA [None]
  - BLOOD PRESSURE INCREASED [None]
  - DIZZINESS [None]
  - NERVOUSNESS [None]
  - WEIGHT DECREASED [None]
